FAERS Safety Report 6439040-X (Version None)
Quarter: 2009Q4

REPORT INFORMATION
  Report Type: 
  Country: None (occurrence: None)
  Receive Date: 20091113
  Receipt Date: 20091104
  Transmission Date: 20100525
  Serious: No
  Sender: FDA-Public Use
  Company Number: JP-ROCHE-668173

PATIENT
  Age: 6 Year
  Sex: Female

DRUGS (2)
  1. TAMIFLU [Suspect]
     Indication: INFLUENZA
     Dosage: DOSE FORM REPORTED AS DRY SYRUP 3%
     Route: 048
     Dates: start: 20091102, end: 20091102
  2. TAMIFLU [Suspect]
     Dosage: DOSE FORM REPORTED AS DRY SYRUP 3%
     Route: 048
     Dates: start: 20091103, end: 20091103

REACTIONS (2)
  - NO ADVERSE EVENT [None]
  - OVERDOSE [None]
